FAERS Safety Report 20304539 (Version 1)
Quarter: 2022Q1

REPORT INFORMATION
  Report Type: Spontaneous
  Country: US (occurrence: None)
  Receive Date: 20220106
  Receipt Date: 20220106
  Transmission Date: 20220423
  Serious: Yes (Death, Hospitalization)
  Sender: FDA-Public Use
  Company Number: None

PATIENT
  Age: 13 Year
  Sex: Male
  Weight: 61.2 kg

DRUGS (1)
  1. METHOTREXATE [Suspect]
     Active Substance: METHOTREXATE
     Dates: end: 20211223

REACTIONS (7)
  - Abdominal pain [None]
  - Pyrexia [None]
  - Respiratory distress [None]
  - Cardiac arrest [None]
  - Bacterial infection [None]
  - Colitis [None]
  - Brain herniation [None]

NARRATIVE: CASE EVENT DATE: 20211225
